FAERS Safety Report 11421335 (Version 1)
Quarter: 2015Q3

REPORT INFORMATION
  Report Type: Spontaneous
  Country: FR (occurrence: FR)
  Receive Date: 20150826
  Receipt Date: 20150826
  Transmission Date: 20151125
  Serious: Yes (Hospitalization)
  Sender: FDA-Public Use
  Company Number: FR-DSJP-DSE-2015-126478

PATIENT

DRUGS (2)
  1. ALTEISDUO 40 MG/ 12.5 MG [Suspect]
     Active Substance: HYDROCHLOROTHIAZIDE\OLMESARTAN MEDOXOMIL
     Indication: ESSENTIAL HYPERTENSION
     Dosage: 40/12.5 MG, QD
     Route: 048
     Dates: end: 201507
  2. ADENURIC [Concomitant]
     Active Substance: FEBUXOSTAT
     Indication: PRODUCT USED FOR UNKNOWN INDICATION
     Dosage: 80 MG, QD
     Route: 048

REACTIONS (4)
  - Diarrhoea [Recovered/Resolved]
  - Metabolic acidosis [Recovered/Resolved]
  - Dehydration [Recovered/Resolved]
  - Acute prerenal failure [Recovered/Resolved]

NARRATIVE: CASE EVENT DATE: 201506
